FAERS Safety Report 19665541 (Version 1)
Quarter: 2021Q3

REPORT INFORMATION
  Report Type: Report from Study
  Country: US (occurrence: US)
  Receive Date: 20210806
  Receipt Date: 20210806
  Transmission Date: 20211014
  Serious: Yes (Death, Life-Threatening, Other)
  Sender: FDA-Public Use
  Company Number: US-JNJFOC-20210761024

PATIENT
  Sex: Male

DRUGS (3)
  1. ENZALUTAMIDE [Suspect]
     Active Substance: ENZALUTAMIDE
     Indication: HORMONE-REFRACTORY PROSTATE CANCER
     Route: 065
  2. DAROLUTAMIDE. [Suspect]
     Active Substance: DAROLUTAMIDE
     Indication: HORMONE-REFRACTORY PROSTATE CANCER
     Route: 065
  3. ERLEADA [Suspect]
     Active Substance: APALUTAMIDE
     Indication: HORMONE-REFRACTORY PROSTATE CANCER
     Route: 048

REACTIONS (18)
  - Fall [Unknown]
  - Diarrhoea [Fatal]
  - Arthralgia [Unknown]
  - Constipation [Unknown]
  - Urinary tract infection [Unknown]
  - Nausea [Unknown]
  - Back pain [Unknown]
  - Oedema peripheral [Unknown]
  - Adverse event [Fatal]
  - Decreased appetite [Unknown]
  - Fatigue [Unknown]
  - Fracture [Fatal]
  - Hot flush [Unknown]
  - Hypertension [Unknown]
  - Weight decreased [Unknown]
  - Asthenia [Unknown]
  - Haematuria [Unknown]
  - Urinary retention [Unknown]
